FAERS Safety Report 23193406 (Version 2)
Quarter: 2023Q4

REPORT INFORMATION
  Report Type: Spontaneous
  Country: IT (occurrence: IT)
  Receive Date: 20231116
  Receipt Date: 20231123
  Transmission Date: 20240110
  Serious: Yes (Hospitalization, Other)
  Sender: FDA-Public Use
  Company Number: IT-TEVA-2023-IT-2944520

PATIENT
  Sex: Female

DRUGS (8)
  1. FLUOROURACIL [Suspect]
     Active Substance: FLUOROURACIL
     Indication: Colorectal adenocarcinoma
     Dosage: 600 MG AS A PART OF FOLFOX6 REGIMEN
     Route: 040
     Dates: start: 202106, end: 2022
  2. FLUOROURACIL [Suspect]
     Active Substance: FLUOROURACIL
     Dosage: 4000MG 48H INFUSION AS A PART OF FOLFOX6 REGIMEN
     Route: 041
     Dates: start: 202106, end: 2022
  3. OXALIPLATIN [Suspect]
     Active Substance: OXALIPLATIN
     Indication: Colorectal adenocarcinoma
     Dosage: 135MG INFUSION OVER 2H AS A PART OF FOLFOX6 REGIMEN
     Route: 041
     Dates: start: 202106, end: 2022
  4. CAPECITABINE [Suspect]
     Active Substance: CAPECITABINE
     Indication: Colorectal adenocarcinoma
     Route: 065
     Dates: end: 2021
  5. LEUCOVORIN [Suspect]
     Active Substance: LEUCOVORIN\LEUCOVORIN CALCIUM
     Indication: Colorectal adenocarcinoma
     Dosage: 300MG INFUSION OVER 2H AS A PART OF FOLFOX6 REGIMEN
     Route: 041
     Dates: start: 202106, end: 2022
  6. PANITUMUMAB [Suspect]
     Active Substance: PANITUMUMAB
     Indication: Colorectal adenocarcinoma
     Dosage: 320 MG
     Route: 042
     Dates: start: 202106, end: 2022
  7. BEVACIZUMAB [Suspect]
     Active Substance: BEVACIZUMAB
     Indication: Colorectal adenocarcinoma
     Dosage: 270 MG
     Route: 042
     Dates: start: 202207, end: 202209
  8. IRINOTECAN [Concomitant]
     Active Substance: IRINOTECAN
     Indication: Colorectal adenocarcinoma
     Dosage: 280MG EVERY 1 HOUR
     Route: 041
     Dates: start: 202207, end: 202209

REACTIONS (4)
  - Thrombocytopenic purpura [Not Recovered/Not Resolved]
  - Back pain [Unknown]
  - Chills [Unknown]
  - Drug ineffective [Unknown]

NARRATIVE: CASE EVENT DATE: 20210101
